FAERS Safety Report 6760296-8 (Version None)
Quarter: 2010Q2

REPORT INFORMATION
  Report Type: 
  Country: None (occurrence: None)
  Receive Date: 20100528
  Receipt Date: 20081110
  Transmission Date: 20101027
  Serious: No
  Sender: FDA-Public Use
  Company Number: 2008-00119

PATIENT
  Age: 35 Year
  Sex: Male
  Weight: 113.3993 kg

DRUGS (4)
  1. ZICAM COLD REMEDY GEL SWABS [Suspect]
     Dosage: QID/1 DAY
     Dates: start: 20081107, end: 20081108
  2. ZICAM COLD REMEDY ORAL MIST [Suspect]
     Dosage: QID X 2 DAY
     Dates: start: 20081107, end: 20081108
  3. MUCINEX [Concomitant]
  4. ADVIL LIQUI-GELS [Concomitant]

REACTIONS (2)
  - AGEUSIA [None]
  - ANOSMIA [None]
